FAERS Safety Report 4707125-1 (Version None)
Quarter: 2005Q3

REPORT INFORMATION
  Report Type: 
  Country: None (occurrence: None)
  Receive Date: 20050701
  Receipt Date: 20050622
  Transmission Date: 20060218
  Serious: Yes (Hospitalization)
  Sender: FDA-Public Use
  Company Number: EM2005-0287

PATIENT
  Age: 47 Year
  Sex: Male
  Weight: 64 kg

DRUGS (6)
  1. PROLEUKIN [Suspect]
     Indication: RENAL CELL CARCINOMA STAGE UNSPECIFIED
     Dosage: SEE IMAGE
     Route: 058
     Dates: start: 20040719, end: 20040724
  2. PROLEUKIN [Suspect]
     Indication: RENAL CELL CARCINOMA STAGE UNSPECIFIED
     Dosage: SEE IMAGE
     Route: 058
     Dates: start: 20040915, end: 20040920
  3. PROLEUKIN [Suspect]
     Indication: RENAL CELL CARCINOMA STAGE UNSPECIFIED
     Dosage: SEE IMAGE
     Route: 058
     Dates: start: 20041213, end: 20041218
  4. MYOPLEGNINE (SUXAMEHTONOIUM CHLORIDE) [Concomitant]
  5. FELDENE [Concomitant]
  6. PANTOPRAZOLE SODIUM [Concomitant]

REACTIONS (6)
  - ADENOIDAL HYPERTROPHY [None]
  - CONJUNCTIVITIS BACTERIAL [None]
  - DEAFNESS BILATERAL [None]
  - EAR INFECTION [None]
  - ORAL FUNGAL INFECTION [None]
  - TENDONITIS [None]
